FAERS Safety Report 15977303 (Version 7)
Quarter: 2019Q4

REPORT INFORMATION
  Report Type: Spontaneous
  Country: US (occurrence: US)
  Receive Date: 20190218
  Receipt Date: 20191128
  Transmission Date: 20200122
  Serious: Yes (Other)
  Sender: FDA-Public Use
  Company Number: US-ASTRAZENECA-2018SF14715

PATIENT
  Age: 600 Month
  Sex: Male
  Weight: 132.4 kg

DRUGS (38)
  1. NEXIUM [Suspect]
     Active Substance: ESOMEPRAZOLE MAGNESIUM
     Indication: GASTROOESOPHAGEAL REFLUX DISEASE
     Route: 048
     Dates: start: 20180430
  2. PRILOSEC [Suspect]
     Active Substance: OMEPRAZOLE MAGNESIUM
     Indication: GASTROOESOPHAGEAL REFLUX DISEASE
     Route: 048
  3. PRILOSEC OTC [Suspect]
     Active Substance: OMEPRAZOLE MAGNESIUM
     Indication: GASTROOESOPHAGEAL REFLUX DISEASE
     Route: 048
     Dates: start: 20030720, end: 20180101
  4. VITAMIN D [Concomitant]
     Active Substance: VITAMIN D NOS
  5. LOVASTATIN. [Concomitant]
     Active Substance: LOVASTATIN
  6. GLIPIZIDE. [Concomitant]
     Active Substance: GLIPIZIDE
  7. HYDROCHLOROTHIAZIDE. [Concomitant]
     Active Substance: HYDROCHLOROTHIAZIDE
  8. NOVOLIN [Concomitant]
     Active Substance: INSULIN HUMAN
     Indication: DIABETES MELLITUS
     Dates: start: 20180226
  9. FUROSEMIDE. [Concomitant]
     Active Substance: FUROSEMIDE
  10. IBUPROFEN. [Concomitant]
     Active Substance: IBUPROFEN
  11. TRADJENTA [Concomitant]
     Active Substance: LINAGLIPTIN
     Indication: DIABETES MELLITUS
     Dates: start: 20180215
  12. QUETIAPINE. [Concomitant]
     Active Substance: QUETIAPINE
     Indication: ANTIPSYCHOTIC DRUG LEVEL THERAPEUTIC
     Dates: start: 20180121
  13. PANTOPRAZOLE [Suspect]
     Active Substance: PANTOPRAZOLE
     Indication: GASTROOESOPHAGEAL REFLUX DISEASE
     Dosage: GENERIC
     Route: 065
     Dates: start: 201601, end: 201802
  14. NOVOLOG [Concomitant]
     Active Substance: INSULIN ASPART
  15. QUETIAPINE FUMARATE. [Concomitant]
     Active Substance: QUETIAPINE FUMARATE
  16. FISH OIL [Concomitant]
     Active Substance: FISH OIL
  17. MONTELUKAST [Concomitant]
     Active Substance: MONTELUKAST SODIUM
     Indication: HYPERSENSITIVITY
     Dates: start: 20180222
  18. NEXIUM [Suspect]
     Active Substance: ESOMEPRAZOLE MAGNESIUM
     Indication: GASTROOESOPHAGEAL REFLUX DISEASE
     Dosage: GENERIC
     Route: 065
     Dates: start: 201707, end: 201802
  19. NEXIUM 24HR [Suspect]
     Active Substance: ESOMEPRAZOLE MAGNESIUM
     Indication: GASTROOESOPHAGEAL REFLUX DISEASE
     Route: 048
     Dates: start: 201707, end: 201812
  20. PRILOSEC OTC [Suspect]
     Active Substance: OMEPRAZOLE MAGNESIUM
     Indication: GASTROOESOPHAGEAL REFLUX DISEASE
     Route: 048
  21. FENOFIBRATE. [Concomitant]
     Active Substance: FENOFIBRATE
     Indication: BLOOD CHOLESTEROL
     Dates: start: 20180227
  22. WELLBUTRIN [Concomitant]
     Active Substance: BUPROPION HYDROCHLORIDE
  23. GLIPIZIDE. [Concomitant]
     Active Substance: GLIPIZIDE
     Indication: DIABETES MELLITUS
     Dates: start: 20180125
  24. ATORVASTATIN [Concomitant]
     Active Substance: ATORVASTATIN
  25. SINGULAIR [Concomitant]
     Active Substance: MONTELUKAST SODIUM
  26. NEXIUM 24HR [Suspect]
     Active Substance: ESOMEPRAZOLE MAGNESIUM
     Indication: GASTROOESOPHAGEAL REFLUX DISEASE
     Route: 048
     Dates: start: 20170710, end: 20181201
  27. PANTOPRAZOLE [Suspect]
     Active Substance: PANTOPRAZOLE
     Indication: GASTROOESOPHAGEAL REFLUX DISEASE
     Route: 065
  28. ASPIRIN. [Concomitant]
     Active Substance: ASPIRIN
  29. NEXIUM [Suspect]
     Active Substance: ESOMEPRAZOLE MAGNESIUM
     Indication: GASTROOESOPHAGEAL REFLUX DISEASE
     Route: 048
     Dates: start: 201409, end: 201712
  30. PRILOSEC [Suspect]
     Active Substance: OMEPRAZOLE MAGNESIUM
     Indication: GASTROOESOPHAGEAL REFLUX DISEASE
     Dosage: GENERIC
     Route: 065
     Dates: start: 200802, end: 200803
  31. LANTUS [Concomitant]
     Active Substance: INSULIN GLARGINE
  32. GABAPENTIN. [Concomitant]
     Active Substance: GABAPENTIN
  33. TOPIRAMATE. [Concomitant]
     Active Substance: TOPIRAMATE
  34. DESVENLAFAXINE. [Concomitant]
     Active Substance: DESVENLAFAXINE
     Indication: DEPRESSION
     Dates: start: 20180207
  35. TRAZODONE [Concomitant]
     Active Substance: TRAZODONE HYDROCHLORIDE
     Indication: DEPRESSION
     Dates: start: 20180207
  36. PRILOSEC OTC [Suspect]
     Active Substance: OMEPRAZOLE MAGNESIUM
     Indication: GASTROOESOPHAGEAL REFLUX DISEASE
     Route: 048
     Dates: start: 200307, end: 201801
  37. TRADJENTA [Concomitant]
     Active Substance: LINAGLIPTIN
     Indication: DIABETES MELLITUS
     Dates: start: 20180108
  38. BUPROPION. [Concomitant]
     Active Substance: BUPROPION
     Indication: DEPRESSION
     Dates: start: 20180207

REACTIONS (3)
  - Chronic kidney disease [Not Recovered/Not Resolved]
  - Tubulointerstitial nephritis [Unknown]
  - Renal injury [Unknown]

NARRATIVE: CASE EVENT DATE: 201707
